FAERS Safety Report 9738892 (Version 2)
Quarter: 2013Q4

REPORT INFORMATION
  Report Type: Spontaneous
  Country: US (occurrence: US)
  Receive Date: 20131209
  Receipt Date: 20131209
  Transmission Date: 20140711
  Serious: Yes (Other)
  Sender: FDA-Public Use
  Company Number: US-JNJFOC-20131105014

PATIENT
  Age: 64 Year
  Sex: Male
  Weight: 81.19 kg

DRUGS (11)
  1. INVOKANA [Suspect]
     Indication: DIABETES MELLITUS
     Route: 048
     Dates: start: 20130815
  2. CIALIS [Concomitant]
     Indication: ERECTILE DYSFUNCTION
     Route: 048
     Dates: start: 2004
  3. ANDROGEL [Concomitant]
     Indication: EMPTY SELLA SYNDROME
     Dosage: 4 PUMPS/DAY, 1.62%
     Route: 062
  4. ANDROGEL [Concomitant]
     Indication: BLOOD TESTOSTERONE DECREASED
     Dosage: 4 PUMPS/DAY, 1.62%
     Route: 062
  5. STRATTERA [Concomitant]
     Indication: ATTENTION DEFICIT/HYPERACTIVITY DISORDER
     Route: 048
     Dates: start: 2012
  6. AMLODIPINE [Concomitant]
     Indication: HYPERTENSION
     Route: 048
     Dates: start: 2012
  7. LANSOPRAZOLE [Concomitant]
     Indication: COUGH
     Route: 048
     Dates: start: 2009
  8. LOSARTAN [Concomitant]
     Indication: HYPERTENSION
     Route: 048
     Dates: start: 2012
  9. FLUTICASONE PROPIONATE [Concomitant]
     Indication: SEASONAL ALLERGY
     Route: 045
     Dates: start: 2007
  10. ATORVASTATIN [Concomitant]
     Indication: BLOOD CHOLESTEROL ABNORMAL
     Route: 048
     Dates: start: 1993
  11. NEXIUM [Concomitant]

REACTIONS (2)
  - Erectile dysfunction [Not Recovered/Not Resolved]
  - Dizziness postural [Not Recovered/Not Resolved]
